FAERS Safety Report 7572151-4 (Version None)
Quarter: 2011Q2

REPORT INFORMATION
  Report Type: 
  Country: None (occurrence: None)
  Receive Date: 20110624
  Receipt Date: 20110614
  Transmission Date: 20111010
  Serious: Yes (Hospitalization, Other)
  Sender: FDA-Public Use
  Company Number: GB-SANOFI-AVENTIS-2011SA037834

PATIENT
  Age: 64 Year
  Sex: Female
  Weight: 75.6 kg

DRUGS (18)
  1. LANTUS [Suspect]
     Indication: TYPE 2 DIABETES MELLITUS
     Dates: start: 20110228
  2. METFORMIN HCL [Concomitant]
  3. SOLOSTAR [Suspect]
     Indication: TYPE 2 DIABETES MELLITUS
  4. STUGERON [Concomitant]
     Route: 048
     Dates: start: 20110313, end: 20110313
  5. ACETAMINOPHEN [Concomitant]
     Route: 048
     Dates: start: 20110412, end: 20110412
  6. ACETAMINOPHEN [Concomitant]
     Route: 048
     Dates: start: 20110603
  7. ACETAMINOPHEN [Concomitant]
     Route: 048
     Dates: start: 20110603
  8. SCOPOLAMINE [Concomitant]
     Route: 042
     Dates: start: 20110519, end: 20110519
  9. HYDROXOCOBALAMIN [Concomitant]
     Dosage: DOSE:1 MILLIGRAM(S)/DECILITRE
     Dates: start: 20110331
  10. IBUPROFEN [Concomitant]
     Indication: PAIN
     Route: 048
     Dates: start: 20110413, end: 20110506
  11. APIDRA [Suspect]
     Indication: TYPE 2 DIABETES MELLITUS
     Dates: start: 20110525
  12. SOLOSTAR [Suspect]
  13. ACETAMINOPHEN [Concomitant]
     Route: 048
     Dates: start: 20110403, end: 20110404
  14. ACETAMINOPHEN [Concomitant]
     Route: 048
     Dates: start: 20110412, end: 20110412
  15. MANNITOL [Concomitant]
     Route: 048
     Dates: start: 20110519, end: 20110519
  16. DOTAREM [Concomitant]
     Route: 042
     Dates: start: 20110519, end: 20110519
  17. FERROUS FUMARATE [Concomitant]
     Route: 048
     Dates: start: 20110325
  18. ACETAMINOPHEN [Concomitant]
     Indication: PAIN
     Route: 048
     Dates: start: 20110403, end: 20110404

REACTIONS (2)
  - WRONG DRUG ADMINISTERED [None]
  - HYPOGLYCAEMIA [None]
